FAERS Safety Report 21582631 (Version 3)
Quarter: 2022Q4

REPORT INFORMATION
  Report Type: Report from Study
  Country: US (occurrence: None)
  Receive Date: 20221111
  Receipt Date: 20221118
  Transmission Date: 20230112
  Serious: Yes (Death)
  Sender: FDA-Public Use
  Company Number: 2022A372046

PATIENT

DRUGS (2)
  1. ANDEXXA [Suspect]
     Active Substance: ANDEXANET ALFA
     Indication: Gastrointestinal haemorrhage
     Route: 040
  2. ANDEXXA [Suspect]
     Active Substance: ANDEXANET ALFA
     Indication: Anticoagulant therapy
     Route: 040

REACTIONS (1)
  - Death [Fatal]
